FAERS Safety Report 24047337 (Version 2)
Quarter: 2024Q3

REPORT INFORMATION
  Report Type: Spontaneous
  Country: JP (occurrence: None)
  Receive Date: 20240703
  Receipt Date: 20240802
  Transmission Date: 20241017
  Serious: Yes (Other)
  Sender: ASTRAZENECA
  Company Number: 2024A149554

PATIENT
  Age: 42 Year
  Sex: Female
  Weight: 47 kg

DRUGS (5)
  1. TRUQAP [Suspect]
     Active Substance: CAPIVASERTIB
     Indication: Breast cancer recurrent
     Dosage: ON A 4-DAYS-ON, 3-DAYS-OFF SCHEDULE
     Route: 048
     Dates: start: 20240613, end: 20240623
  2. TRUQAP [Suspect]
     Active Substance: CAPIVASERTIB
     Indication: Breast cancer recurrent
     Route: 048
     Dates: start: 20240710, end: 20240713
  3. TRUQAP [Suspect]
     Active Substance: CAPIVASERTIB
     Indication: Breast cancer recurrent
     Route: 048
     Dates: start: 20240718
  4. FASLODEX [Suspect]
     Active Substance: FULVESTRANT
     Indication: Breast cancer recurrent
     Route: 030
     Dates: start: 20240502
  5. ABEMACICLIB [Concomitant]
     Active Substance: ABEMACICLIB
     Indication: Breast cancer recurrent
     Dosage: DOSE UNKNOWN
     Route: 065
     Dates: start: 20240415, end: 20240613

REACTIONS (1)
  - Drug eruption [Recovered/Resolved]

NARRATIVE: CASE EVENT DATE: 20240624
